FAERS Safety Report 7770527-3 (Version None)
Quarter: 2011Q3

REPORT INFORMATION
  Report Type: 
  Country: None (occurrence: None)
  Receive Date: 20110922
  Receipt Date: 20110615
  Transmission Date: 20111222
  Serious: No
  Sender: FDA-Public Use
  Company Number: US-ASTRAZENECA-2011SE16663

PATIENT
  Age: 53 Year
  Sex: Male
  Weight: 56.7 kg

DRUGS (3)
  1. EXFORGE [Concomitant]
  2. NORVASC [Concomitant]
  3. SEROQUEL [Suspect]
     Indication: BIPOLAR DISORDER
     Route: 048
     Dates: start: 20110322

REACTIONS (4)
  - TACHYPHRENIA [None]
  - PARAESTHESIA [None]
  - FATIGUE [None]
  - DYSKINESIA [None]
